FAERS Safety Report 7618394-2 (Version None)
Quarter: 2011Q3

REPORT INFORMATION
  Report Type: 
  Country: None (occurrence: None)
  Receive Date: 20110718
  Receipt Date: 20110709
  Transmission Date: 20111222
  Serious: Yes (Other)
  Sender: FDA-Public Use
  Company Number: PHHY2011IL61368

PATIENT
  Age: 55 Year
  Sex: Male

DRUGS (1)
  1. RITALIN [Suspect]
     Dosage: 60 MG, DAILY
     Route: 048

REACTIONS (2)
  - ADRENAL CARCINOMA [None]
  - 5-HYDROXYINDOLACETIC ACID IN URINE INCREASED [None]
